FAERS Safety Report 23999574 (Version 1)
Quarter: 2024Q2

REPORT INFORMATION
  Report Type: Spontaneous
  Country: US (occurrence: US)
  Receive Date: 20240621
  Receipt Date: 20240621
  Transmission Date: 20240715
  Serious: Yes (Other)
  Sender: FDA-Public Use
  Company Number: US-QUAGEN-2024QUALIT00188

PATIENT
  Age: 2 Year

DRUGS (2)
  1. VALPROIC ACID [Suspect]
     Active Substance: VALPROIC ACID
     Indication: Severe myoclonic epilepsy of infancy
     Route: 065
  2. VALPROIC ACID [Suspect]
     Active Substance: VALPROIC ACID
     Indication: Epilepsy

REACTIONS (2)
  - Central sleep apnoea syndrome [Recovering/Resolving]
  - Product use in unapproved indication [Unknown]
